FAERS Safety Report 6438739-9 (Version None)
Quarter: 2009Q4

REPORT INFORMATION
  Report Type: 
  Country: None (occurrence: None)
  Receive Date: 20091113
  Receipt Date: 20091104
  Transmission Date: 20100525
  Serious: Yes (Hospitalization)
  Sender: FDA-Public Use
  Company Number: SE-JNJFOC-20091102192

PATIENT
  Age: 42 Year
  Sex: Male

DRUGS (1)
  1. REMICADE [Suspect]
     Indication: ANKYLOSING SPONDYLITIS
     Dosage: DATES UNSPECIFIED
     Route: 042
     Dates: start: 20070101, end: 20090922

REACTIONS (4)
  - CHILLS [None]
  - DYSPNOEA [None]
  - INFUSION RELATED REACTION [None]
  - PALLOR [None]
